FAERS Safety Report 12435918 (Version 3)
Quarter: 2017Q1

REPORT INFORMATION
  Report Type: Spontaneous
  Country: JP (occurrence: JP)
  Receive Date: 20160604
  Receipt Date: 20170104
  Transmission Date: 20170428
  Serious: Yes (Hospitalization)
  Sender: FDA-Public Use
  Company Number: JP-ASTRAZENECA-2016SE59346

PATIENT
  Age: 23072 Day
  Sex: Female
  Weight: 62 kg

DRUGS (11)
  1. ASVERIN (TIPEPIDINE HIBENZATE) [Concomitant]
     Active Substance: TIPEPIDINE HIBENZATE
     Indication: PHARYNGITIS
     Route: 048
     Dates: start: 20151110, end: 20151115
  2. OMNIPAQUE [Concomitant]
     Active Substance: IOHEXOL
     Dosage: 125.0ML UNKNOWN
     Route: 065
  3. LIPITOR [Concomitant]
     Active Substance: ATORVASTATIN CALCIUM
     Indication: HYPERCHOLESTEROLAEMIA
     Route: 048
     Dates: start: 20090421
  4. AMARYL [Concomitant]
     Active Substance: GLIMEPIRIDE
     Indication: TYPE 2 DIABETES MELLITUS
     Route: 048
     Dates: start: 20120801, end: 20150713
  5. FORXIGA [Suspect]
     Active Substance: DAPAGLIFLOZIN
     Indication: DIABETES MELLITUS
     Route: 048
     Dates: start: 20150121
  6. METGLUCO [Concomitant]
     Active Substance: METFORMIN HYDROCHLORIDE
     Indication: TYPE 2 DIABETES MELLITUS
     Route: 048
     Dates: start: 20121219
  7. MICAMLO [Concomitant]
     Active Substance: AMLODIPINE BESYLATE\TELMISARTAN
     Indication: HYPERTENSION
     Route: 048
     Dates: start: 20110322
  8. BRUFEN [Concomitant]
     Active Substance: IBUPROFEN
     Indication: PHARYNGITIS
     Route: 048
     Dates: start: 20151110, end: 20151115
  9. REBAMIPIDE [Concomitant]
     Active Substance: REBAMIPIDE
     Indication: PHARYNGITIS
     Route: 048
     Dates: start: 20151110, end: 20151115
  10. TRANEXAMIC ACID C [Concomitant]
     Active Substance: TRANEXAMIC ACID
     Indication: PHARYNGITIS
     Route: 048
     Dates: start: 20151110, end: 20151115
  11. SEISHOKU [Concomitant]
     Active Substance: SODIUM CHLORIDE
     Dosage: 20.0ML UNKNOWN
     Route: 065

REACTIONS (2)
  - Pleural mesothelioma [Recovering/Resolving]
  - Liposarcoma [Recovering/Resolving]

NARRATIVE: CASE EVENT DATE: 20160315
